FAERS Safety Report 15682047 (Version 2)
Quarter: 2020Q1

REPORT INFORMATION
  Report Type: Report from Study
  Country: US (occurrence: US)
  Receive Date: 20181203
  Receipt Date: 20200310
  Transmission Date: 20200409
  Serious: Yes (Other)
  Sender: FDA-Public Use
  Company Number: US-REGENERON PHARMACEUTICALS, INC.-2018-21870

PATIENT

DRUGS (7)
  1. EYLEA [Suspect]
     Active Substance: AFLIBERCEPT
     Dosage: PFS 2MG 0.05ML INTO THE LEFT EYE EVERY 28 DAYS
     Route: 031
  2. AMLODIPINE [Concomitant]
     Active Substance: AMLODIPINE BESYLATE
     Indication: PRODUCT USED FOR UNKNOWN INDICATION
     Dosage: 5 MG, UNK
  3. GABAPENTIN. [Concomitant]
     Active Substance: GABAPENTIN
     Indication: PRODUCT USED FOR UNKNOWN INDICATION
     Dosage: 100 MG, UNK
  4. EYLEA [Suspect]
     Active Substance: AFLIBERCEPT
     Indication: VITREOUS DEGENERATION
     Dosage: 2 MG, INTO LEFT EYE, EVERY 28 DAYS
     Route: 031
     Dates: start: 20160927
  5. GLIPIZIDE. [Concomitant]
     Active Substance: GLIPIZIDE
     Indication: PRODUCT USED FOR UNKNOWN INDICATION
     Dosage: 10 MG, UNK
  6. LEVOTHYROXIN [Concomitant]
     Active Substance: LEVOTHYROXINE
     Indication: PRODUCT USED FOR UNKNOWN INDICATION
     Dosage: 88 MCG, UNK
  7. ATORVASTATIN [Concomitant]
     Active Substance: ATORVASTATIN
     Indication: PRODUCT USED FOR UNKNOWN INDICATION
     Dosage: 10 MG, UNK

REACTIONS (6)
  - Ocular discomfort [Not Recovered/Not Resolved]
  - Ill-defined disorder [Recovered/Resolved]
  - Eye haemorrhage [Unknown]
  - Product dose omission [Unknown]
  - Product administration error [Unknown]
  - Foreign body sensation in eyes [Recovered/Resolved]
